FAERS Safety Report 7918085-4 (Version None)
Quarter: 2011Q4

REPORT INFORMATION
  Report Type: 
  Country: None (occurrence: None)
  Receive Date: 20111114
  Receipt Date: 20111102
  Transmission Date: 20120403
  Serious: Yes (Hospitalization)
  Sender: FDA-Public Use
  Company Number: 2011SP051838

PATIENT
  Age: 40 Year
  Sex: Female

DRUGS (4)
  1. LODOZ (GALENIC /BISOPROLOL/HYDROCHLOROTHIAZIDE/) [Suspect]
     Indication: HYPERTENSION
     Dosage: 1 DF; QD
     Dates: start: 20090310, end: 20091001
  2. LEVOTHYROXINE SODIUM [Suspect]
     Indication: HYPOTHYROIDISM
     Dates: start: 20090310, end: 20091001
  3. NICARDIPINE HYDROCHLORIDE [Suspect]
     Indication: HYPERTENSION
     Dosage: 50 MG; BID
     Dates: start: 20090310, end: 20091001
  4. NORSET (MITRAZAPINE /01293201/) [Suspect]
     Indication: DEPRESSION
     Dosage: 15 MG; QD; PO
     Route: 048
     Dates: start: 20090310, end: 20090901

REACTIONS (5)
  - PREMATURE DELIVERY [None]
  - PREGNANCY [None]
  - GESTATIONAL HYPERTENSION [None]
  - MATERNAL EXPOSURE DURING PREGNANCY [None]
  - CAESAREAN SECTION [None]
